FAERS Safety Report 15633733 (Version 4)
Quarter: 2019Q3

REPORT INFORMATION
  Report Type: Spontaneous
  Country: US (occurrence: US)
  Receive Date: 20181119
  Receipt Date: 20190702
  Transmission Date: 20191004
  Serious: Yes (Other)
  Sender: FDA-Public Use
  Company Number: US-SA-2018SA314387

PATIENT
  Age: 54 Year
  Sex: Female
  Weight: 130.1 kg

DRUGS (14)
  1. ATENOLOL. [Concomitant]
     Active Substance: ATENOLOL
  2. TRICOR [ADENOSINE] [Concomitant]
     Active Substance: ADENOSINE
  3. NEOSAR [Concomitant]
     Active Substance: CYCLOPHOSPHAMIDE
     Dosage: UNK
     Route: 065
  4. JANUVIA [Concomitant]
     Active Substance: SITAGLIPTIN PHOSPHATE
  5. AVANDAMET [Concomitant]
     Active Substance: METFORMIN HYDROCHLORIDE\ROSIGLITAZONE MALEATE
  6. ZESTRIL [Concomitant]
     Active Substance: LISINOPRIL
  7. TENORMIN [Concomitant]
     Active Substance: ATENOLOL
  8. TAXOTERE [Suspect]
     Active Substance: DOCETAXEL
     Indication: BREAST CANCER FEMALE
     Dosage: Q3W, 132 MG-165 MG
     Route: 042
     Dates: start: 20080130, end: 20080130
  9. TAXOTERE [Suspect]
     Active Substance: DOCETAXEL
     Dosage: Q3W, 132 MG-165 MG
     Route: 042
     Dates: start: 20080410, end: 20080410
  10. CYTOXAN [Concomitant]
     Active Substance: CYCLOPHOSPHAMIDE
  11. LISINOPRIL. [Concomitant]
     Active Substance: LISINOPRIL
  12. GLIMEPIRIDE. [Concomitant]
     Active Substance: GLIMEPIRIDE
  13. PREVACID [Concomitant]
     Active Substance: LANSOPRAZOLE
  14. SIMVASTATIN. [Concomitant]
     Active Substance: SIMVASTATIN

REACTIONS (1)
  - Alopecia [Recovering/Resolving]

NARRATIVE: CASE EVENT DATE: 20080522
